FAERS Safety Report 7736834-5 (Version None)
Quarter: 2011Q3

REPORT INFORMATION
  Report Type: 
  Country: None (occurrence: None)
  Receive Date: 20110908
  Receipt Date: 20110908
  Transmission Date: 20111222
  Serious: No
  Sender: FDA-Public Use
  Company Number: None

PATIENT
  Age: 30 Year
  Sex: Female
  Weight: 63.502 kg

DRUGS (5)
  1. MIRCETTE [Concomitant]
  2. EMSAM [Suspect]
     Indication: DEPRESSION
     Dosage: 6 MG
     Route: 062
     Dates: start: 20110701, end: 20110830
  3. BUSPIRONE [Concomitant]
     Route: 048
  4. PROVENTIL INHALER AS NEEDED [Concomitant]
  5. SYNTHROID [Concomitant]
     Route: 048

REACTIONS (1)
  - PRODUCT ADHESION ISSUE [None]
